FAERS Safety Report 8548207-6 (Version None)
Quarter: 2012Q3

REPORT INFORMATION
  Report Type: 
  Country: None (occurrence: None)
  Receive Date: 20120730
  Receipt Date: 20120718
  Transmission Date: 20120928
  Serious: No
  Sender: FDA-Public Use
  Company Number: US-BIOGENIDEC-2012BI026202

PATIENT
  Age: 43 Year
  Sex: Male

DRUGS (2)
  1. AVONEX [Suspect]
     Indication: MULTIPLE SCLEROSIS
     Route: 030
     Dates: start: 20120615
  2. AVONEX [Suspect]
     Route: 030
     Dates: start: 20120626

REACTIONS (10)
  - PAIN [None]
  - ASTHENIA [None]
  - DECREASED APPETITE [None]
  - INFLUENZA LIKE ILLNESS [None]
  - FAECAL INCONTINENCE [None]
  - POOR QUALITY SLEEP [None]
  - SPEECH DISORDER [None]
  - VOMITING [None]
  - CHILLS [None]
  - LOSS OF CONTROL OF LEGS [None]
